FAERS Safety Report 22385791 (Version 1)
Quarter: 2023Q2

REPORT INFORMATION
  Report Type: Spontaneous
  Country: US (occurrence: US)
  Receive Date: 20230530
  Receipt Date: 20230530
  Transmission Date: 20230722
  Serious: Yes (Other)
  Sender: FDA-Public Use
  Company Number: US-PFIZER INC-PV202300093274

PATIENT
  Age: 12 Year
  Sex: Male

DRUGS (1)
  1. OXBRYTA [Suspect]
     Active Substance: VOXELOTOR
     Indication: Sickle cell anaemia
     Dosage: UNK

REACTIONS (5)
  - Osteonecrosis [Unknown]
  - Sickle cell anaemia with crisis [Unknown]
  - Hypersplenism [Unknown]
  - Pain [Unknown]
  - Bone pain [Unknown]
